FAERS Safety Report 23919552 (Version 1)
Quarter: 2024Q2

REPORT INFORMATION
  Report Type: Spontaneous
  Country: US (occurrence: US)
  Receive Date: 20240530
  Receipt Date: 20240530
  Transmission Date: 20240716
  Serious: Yes (Other)
  Sender: FDA-Public Use
  Company Number: US-BEH-2024172765

PATIENT
  Age: 4 Year
  Sex: Male

DRUGS (1)
  1. HUMAN IMMUNOGLOBULIN G [Suspect]
     Active Substance: HUMAN IMMUNOGLOBULIN G
     Indication: Autism spectrum disorder
     Dosage: 2000 MG/KG, Q3W
     Route: 042

REACTIONS (3)
  - Papilloedema [Unknown]
  - Intraocular pressure increased [Unknown]
  - Off label use [Unknown]
